FAERS Safety Report 23383515 (Version 1)
Quarter: 2024Q1

REPORT INFORMATION
  Report Type: Spontaneous
  Country: CA (occurrence: CA)
  Receive Date: 20240109
  Receipt Date: 20240109
  Transmission Date: 20240409
  Serious: Yes (Other)
  Sender: FDA-Public Use
  Company Number: CA-PFIZER INC-PV202400000644

PATIENT
  Age: 58 Year
  Sex: Female

DRUGS (1)
  1. PAMIDRONATE DISODIUM [Suspect]
     Active Substance: PAMIDRONATE DISODIUM
     Indication: Hyperparathyroidism
     Dosage: 60 MG
     Route: 042

REACTIONS (2)
  - Iridocyclitis [Recovering/Resolving]
  - Scleritis [Recovering/Resolving]
